FAERS Safety Report 11060007 (Version 3)
Quarter: 2015Q2

REPORT INFORMATION
  Report Type: Report from Study
  Country: US (occurrence: US)
  Receive Date: 20150423
  Receipt Date: 20150527
  Transmission Date: 20150821
  Serious: Yes (Death, Hospitalization, Other)
  Sender: FDA-Public Use
  Company Number: GXBR2015US001279

PATIENT
  Age: 68 Year
  Sex: Female
  Weight: 37.28 kg

DRUGS (15)
  1. GLUTAMINE [Concomitant]
     Active Substance: GLUTAMINE
     Indication: NEUROPATHY PERIPHERAL
     Dosage: UNK DF, UNK
     Route: 065
  2. MARINOL [Concomitant]
     Active Substance: DRONABINOL
     Indication: DECREASED APPETITE
     Dosage: UNK DF, UNK
  3. ENOXAPARIN SODIUM. [Suspect]
     Active Substance: ENOXAPARIN SODIUM
     Dosage: 60 MG, QD
     Route: 058
     Dates: start: 201204, end: 201209
  4. B-VITAMINS [Concomitant]
     Indication: NEUROPATHY PERIPHERAL
     Dosage: UNK DF, UNK
     Route: 065
  5. VITAMIN B12 [Concomitant]
     Active Substance: CYANOCOBALAMIN
     Indication: NEUROPATHY PERIPHERAL
     Dosage: UNK DF, UNK
     Route: 065
  6. ENOXAPARIN SODIUM. [Suspect]
     Active Substance: ENOXAPARIN SODIUM
     Dosage: 60 MG, QD
     Route: 058
     Dates: start: 201309, end: 20150116
  7. CITALOPRAM [Concomitant]
     Active Substance: CITALOPRAM HYDROBROMIDE
     Indication: ANXIETY
     Dosage: UNK MG, UNK
     Route: 065
  8. WELLBUTRIN [Concomitant]
     Active Substance: BUPROPION HYDROCHLORIDE
     Indication: DEPRESSION
  9. GABAPENTIN. [Concomitant]
     Active Substance: GABAPENTIN
     Indication: INSOMNIA
  10. ENOXAPARIN SODIUM. [Suspect]
     Active Substance: ENOXAPARIN SODIUM
     Indication: DEEP VEIN THROMBOSIS
     Dosage: 40 MG, BID
     Route: 058
     Dates: start: 20150116
  11. MAGNESIUM [Concomitant]
     Active Substance: MAGNESIUM
     Indication: HYPOMAGNESAEMIA
     Dosage: UNK DF, UNK
     Route: 042
  12. WELLBUTRIN [Concomitant]
     Active Substance: BUPROPION HYDROCHLORIDE
     Indication: ANXIETY
     Dosage: 150 MG, UNK
     Route: 065
  13. GABAPENTIN. [Concomitant]
     Active Substance: GABAPENTIN
     Indication: NEUROPATHY PERIPHERAL
     Dosage: UNK MG, UNK
     Route: 065
  14. DILADID [Concomitant]
     Indication: PAIN
     Dosage: 4-8 MG, PRN
     Route: 065
  15. ZOFRAN [Concomitant]
     Active Substance: ONDANSETRON HYDROCHLORIDE
     Indication: VOMITING
     Dosage: UNK MG, UNK
     Route: 065

REACTIONS (6)
  - Peripheral swelling [Unknown]
  - Nausea [Unknown]
  - Cardiac arrest [Fatal]
  - Diarrhoea [Unknown]
  - Deep vein thrombosis [Unknown]
  - Vomiting [Unknown]

NARRATIVE: CASE EVENT DATE: 201502
